FAERS Safety Report 8812790 (Version 3)
Quarter: 2013Q1

REPORT INFORMATION
  Report Type: Spontaneous
  Country: GB (occurrence: GB)
  Receive Date: 20120927
  Receipt Date: 20130312
  Transmission Date: 20140127
  Serious: Yes (Life-Threatening, Hospitalization, Other)
  Sender: FDA-Public Use
  Company Number: GB-TEVA-359188ISR

PATIENT
  Age: 0 Year
  Sex: Female
  Weight: .45 kg

DRUGS (4)
  1. NIFEDIPINE [Suspect]
     Indication: PRODUCT USED FOR UNKNOWN INDICATION
     Dosage: UNK
     Route: 064
  2. NIFEDIPINE [Suspect]
     Dosage: UNK
     Route: 064
  3. FOLIC ACID [Suspect]
     Indication: PRODUCT USED FOR UNKNOWN INDICATION
     Route: 064
  4. FOLIC ACID [Suspect]
     Route: 064

REACTIONS (8)
  - Neonatal respiratory distress syndrome [Unknown]
  - Foetal growth restriction [Unknown]
  - Amniotic fluid volume decreased [Unknown]
  - Apnoea [Unknown]
  - Bradycardia [Unknown]
  - Foetal exposure during pregnancy [Unknown]
  - Hyperglycaemia [Unknown]
  - Pneumatosis [Unknown]
